FAERS Safety Report 5840352-9 (Version None)
Quarter: 2008Q3

REPORT INFORMATION
  Report Type: 
  Country: None (occurrence: None)
  Receive Date: 20080811
  Receipt Date: 20080804
  Transmission Date: 20090109
  Serious: Yes (Disabling, Other)
  Sender: FDA-Public Use
  Company Number: US-MERCK-0805USA00396

PATIENT
  Age: 53 Year
  Sex: Female
  Weight: 75 kg

DRUGS (3)
  1. FOSAMAX [Suspect]
     Indication: OSTEOPENIA
     Route: 048
     Dates: start: 20021001, end: 20040101
  2. PREMARIN [Concomitant]
     Indication: HORMONE REPLACEMENT THERAPY
     Route: 065
     Dates: start: 19950101
  3. PAXIL [Concomitant]
     Route: 065
     Dates: start: 19990101

REACTIONS (17)
  - ALVEOLAR OSTEITIS [None]
  - EYE SWELLING [None]
  - FACIAL PAIN [None]
  - FOREIGN BODY REACTION [None]
  - GINGIVAL SWELLING [None]
  - HOT FLUSH [None]
  - JAW DISORDER [None]
  - ORAL DISORDER [None]
  - ORAL INFECTION [None]
  - ORAL PAIN [None]
  - OSTEOMYELITIS [None]
  - OSTEONECROSIS [None]
  - PERIODONTAL DISEASE [None]
  - SINUS DISORDER [None]
  - SWELLING FACE [None]
  - TOOTH ABSCESS [None]
  - TOOTH INFECTION [None]
